FAERS Safety Report 11550122 (Version 2)
Quarter: 2015Q4

REPORT INFORMATION
  Report Type: Spontaneous
  Country: CN (occurrence: CN)
  Receive Date: 20150924
  Receipt Date: 20151001
  Transmission Date: 20160304
  Serious: Yes (Death, Hospitalization, Congenital Anomaly, Other)
  Sender: FDA-Public Use
  Company Number: PHHY2015CN114691

PATIENT
  Age: 4 Day
  Sex: Female
  Weight: 3 kg

DRUGS (1)
  1. TELBIVUDINE [Suspect]
     Active Substance: TELBIVUDINE
     Indication: FOETAL EXPOSURE DURING PREGNANCY
     Route: 064

REACTIONS (15)
  - Gastrointestinal sounds abnormal [Fatal]
  - Shock [Fatal]
  - Foetal distress syndrome [Unknown]
  - Phenylketonuria [Unknown]
  - Metabolic acidosis [Unknown]
  - Hypotonia neonatal [Unknown]
  - Hyporeflexia [Unknown]
  - Peritonitis [Fatal]
  - Abdominal distension [Fatal]
  - Gastric perforation [Fatal]
  - Vomiting [Fatal]
  - Foetal exposure during pregnancy [Unknown]
  - Irregular breathing [Unknown]
  - Tachypnoea [Unknown]
  - Unresponsive to stimuli [Unknown]
